FAERS Safety Report 12162049 (Version 1)
Quarter: 2016Q1

REPORT INFORMATION
  Report Type: Spontaneous
  Country: US (occurrence: None)
  Receive Date: 20160308
  Receipt Date: 20160308
  Transmission Date: 20160526
  Serious: Yes (Life-Threatening, Hospitalization)
  Sender: FDA-Public Use
  Company Number: None

PATIENT
  Age: 92 Year
  Sex: Male
  Weight: 82 kg

DRUGS (8)
  1. LEVAQUIN [Suspect]
     Active Substance: LEVOFLOXACIN
     Indication: URINARY TRACT INFECTION
     Dosage: Q24HR
     Route: 048
  2. FLOMAX [Concomitant]
     Active Substance: TAMSULOSIN HYDROCHLORIDE
  3. ALLOPURINOL. [Concomitant]
     Active Substance: ALLOPURINOL
  4. COUMADIN [Concomitant]
     Active Substance: WARFARIN SODIUM
  5. LEVAQUIN [Suspect]
     Active Substance: LEVOFLOXACIN
     Indication: KLEBSIELLA INFECTION
     Dosage: Q24HR
     Route: 048
  6. AVODART [Concomitant]
     Active Substance: DUTASTERIDE
  7. LASIX [Concomitant]
     Active Substance: FUROSEMIDE
  8. COZAAR [Concomitant]
     Active Substance: LOSARTAN POTASSIUM

REACTIONS (3)
  - Electrocardiogram QT prolonged [None]
  - Cardiac arrest [None]
  - Torsade de pointes [None]

NARRATIVE: CASE EVENT DATE: 20150629
